FAERS Safety Report 25396012 (Version 1)
Quarter: 2025Q2

REPORT INFORMATION
  Report Type: Spontaneous
  Country: US (occurrence: None)
  Receive Date: 20250603
  Receipt Date: 20250603
  Transmission Date: 20250717
  Serious: Yes (Life-Threatening, Hospitalization)
  Sender: FDA-CTU
  Company Number: None

PATIENT
  Age: 73 Year
  Sex: Male
  Weight: 78.2 kg

DRUGS (1)
  1. KORLYM [Suspect]
     Active Substance: MIFEPRISTONE
     Indication: Type 2 diabetes mellitus

REACTIONS (6)
  - Hypoglycaemia [None]
  - Loss of consciousness [None]
  - Upper limb fracture [None]
  - Road traffic accident [None]
  - Hyperglycaemia [None]
  - Therapy cessation [None]

NARRATIVE: CASE EVENT DATE: 20250531
